FAERS Safety Report 20492086 (Version 7)
Quarter: 2022Q1

REPORT INFORMATION
  Report Type: Report from Study
  Country: CN (occurrence: None)
  Receive Date: 20220218
  Receipt Date: 20220317
  Transmission Date: 20220424
  Serious: Yes (Death, Life-Threatening, Hospitalization)
  Sender: FDA-Public Use
  Company Number: CN-Eisai Medical Research-EC-2022-109122

PATIENT
  Age: 59 Year
  Sex: Male
  Weight: 63 kg

DRUGS (12)
  1. LENVATINIB [Suspect]
     Active Substance: LENVATINIB
     Indication: Non-small cell lung cancer metastatic
     Route: 048
     Dates: start: 20200516, end: 20220215
  2. LENVATINIB [Suspect]
     Active Substance: LENVATINIB
     Indication: Non-small cell lung cancer
  3. PEMBROLIZUMAB [Suspect]
     Active Substance: PEMBROLIZUMAB
     Indication: Non-small cell lung cancer metastatic
     Route: 041
     Dates: start: 20200516, end: 20220118
  4. PEMBROLIZUMAB [Suspect]
     Active Substance: PEMBROLIZUMAB
     Indication: Non-small cell lung cancer
     Route: 041
     Dates: start: 20220210, end: 20220210
  5. PEMETREXED [Suspect]
     Active Substance: PEMETREXED
     Indication: Non-small cell lung cancer metastatic
     Route: 041
     Dates: start: 20200516, end: 20220118
  6. PEMETREXED [Suspect]
     Active Substance: PEMETREXED
     Indication: Non-small cell lung cancer
     Route: 041
     Dates: start: 20220210, end: 20220210
  7. CISPLATIN [Concomitant]
     Active Substance: CISPLATIN
     Dates: start: 20200516, end: 20200721
  8. FOLIC ACID [Concomitant]
     Active Substance: FOLIC ACID
     Dates: start: 20200508, end: 20220216
  9. BICYCLOL [Concomitant]
     Active Substance: BICYCLOL
     Dates: start: 20201014, end: 20220216
  10. DEXAMETHASONE [Concomitant]
     Active Substance: DEXAMETHASONE
     Dates: start: 20220209, end: 20220211
  11. ONDANSETRON [Concomitant]
     Active Substance: ONDANSETRON
     Dates: start: 20220210, end: 20220210
  12. BUDESONIDE [Concomitant]
     Active Substance: BUDESONIDE
     Dates: start: 20220211, end: 20220215

REACTIONS (1)
  - Tracheal haemorrhage [Fatal]

NARRATIVE: CASE EVENT DATE: 20220215
